FAERS Safety Report 5973171-3 (Version None)
Quarter: 2008Q4

REPORT INFORMATION
  Report Type: 
  Country: None (occurrence: None)
  Receive Date: 20081201
  Receipt Date: 20081118
  Transmission Date: 20090506
  Serious: Yes (Hospitalization, Other)
  Sender: FDA-Public Use
  Company Number: PHHY2008CA02914

PATIENT
  Sex: Male

DRUGS (9)
  1. DIOVAN HCT [Suspect]
     Indication: HYPERTENSION
     Dosage: 80/12.5 MG
     Route: 048
     Dates: start: 20080228, end: 20080319
  2. DIOVAN [Suspect]
     Indication: HYPERTENSION
     Dosage: 80 MG, QD
     Route: 048
     Dates: start: 20071201
  3. DIOVAN [Suspect]
     Dosage: UNK
     Dates: end: 20080701
  4. DIOVAN [Suspect]
     Dosage: 160 UNK, UNK
  5. LOPRESSOR [Concomitant]
     Route: 048
  6. MONOPRIL [Concomitant]
  7. ASPIRIN [Concomitant]
  8. BETA BLOCKING AGENTS [Concomitant]
  9. DIURETICS [Concomitant]

REACTIONS (10)
  - ADVERSE EVENT [None]
  - BLOOD PRESSURE INCREASED [None]
  - CHEST PAIN [None]
  - DYSURIA [None]
  - EXTRASYSTOLES [None]
  - FATIGUE [None]
  - HEART RATE DECREASED [None]
  - HEART RATE IRREGULAR [None]
  - HYPERTENSION [None]
  - PALPITATIONS [None]
